FAERS Safety Report 21130933 (Version 1)
Quarter: 2022Q3

REPORT INFORMATION
  Report Type: Report from Study
  Country: US (occurrence: US)
  Receive Date: 20220726
  Receipt Date: 20220726
  Transmission Date: 20221026
  Serious: Yes (Hospitalization, Other)
  Sender: FDA-Public Use
  Company Number: US-GILEAD-2022-0590722

PATIENT
  Age: 51 Year
  Sex: Male

DRUGS (15)
  1. AZTREONAM LYSINE [Suspect]
     Active Substance: AZTREONAM LYSINE
     Indication: Cystic fibrosis
     Dosage: 75 MG, TID  FOR 28 DAYS ON AND 28 DAYS OFF ALTERNATING WITH TOBRAMYCIN
     Route: 055
     Dates: start: 20220405
  2. QVAR [Concomitant]
     Active Substance: BECLOMETHASONE DIPROPIONATE
  3. VITAMIN D3 [Concomitant]
     Active Substance: CHOLECALCIFEROL
  4. FERROUS SULFATE [Concomitant]
     Active Substance: FERROUS SULFATE
  5. ALBUTEROL SULFATE [Concomitant]
     Active Substance: ALBUTEROL SULFATE
  6. OMEGA 3 DHA [DOCOSAHEXAENOIC ACID] [Concomitant]
  7. AZITHROMYCIN [Concomitant]
     Active Substance: AZITHROMYCIN
  8. OMEPRAZOLE [Concomitant]
     Active Substance: OMEPRAZOLE
  9. VITAMIN C [Concomitant]
     Active Substance: ASCORBIC ACID
  10. VORICONAZOLE [Concomitant]
     Active Substance: VORICONAZOLE
  11. IBUPROFEN [Concomitant]
     Active Substance: IBUPROFEN
  12. ROPINIROLE [Concomitant]
     Active Substance: ROPINIROLE
  13. TOBRAMYCIN [Concomitant]
     Active Substance: TOBRAMYCIN
  14. SODIUM CHLORIDE [Concomitant]
     Active Substance: SODIUM CHLORIDE
  15. PULMOZYME [Concomitant]
     Active Substance: DORNASE ALFA

REACTIONS (1)
  - Pneumonia [Not Recovered/Not Resolved]

NARRATIVE: CASE EVENT DATE: 20220713
